FAERS Safety Report 14963307 (Version 1)
Quarter: 2018Q2

REPORT INFORMATION
  Report Type: Other
  Country: CZ (occurrence: CZ)
  Receive Date: 20180601
  Receipt Date: 20180601
  Transmission Date: 20180711
  Serious: Yes (Life-Threatening)
  Sender: FDA-Public Use
  Company Number: CZ-CELLTRION INC.-2018CZ020147

PATIENT

DRUGS (2)
  1. REMSIMA [Suspect]
     Active Substance: INFLIXIMAB
     Dosage: 500 MG
     Route: 017
     Dates: start: 20180515, end: 20180515
  2. REMSIMA [Suspect]
     Active Substance: INFLIXIMAB
     Indication: RHEUMATOID ARTHRITIS
     Dosage: 500 MG
     Route: 017
     Dates: start: 20170502, end: 20170502

REACTIONS (5)
  - Ear swelling [Recovered/Resolved]
  - Flushing [Recovered/Resolved]
  - Incorrect route of drug administration [Unknown]
  - Dyspnoea [Recovered/Resolved]
  - Hyperhidrosis [Recovered/Resolved]

NARRATIVE: CASE EVENT DATE: 20180515
